FAERS Safety Report 8313835 (Version 13)
Quarter: 2014Q1

REPORT INFORMATION
  Report Type: Spontaneous
  Country: US (occurrence: US)
  Receive Date: 20111228
  Receipt Date: 20140220
  Transmission Date: 20141002
  Serious: Yes (Hospitalization, Congenital Anomaly, Other)
  Sender: FDA-Public Use
  Company Number: US-JNJFOC-20111104016

PATIENT
  Age: 2 Day
  Sex: Male

DRUGS (15)
  1. TOPAMAX [Suspect]
     Indication: FOETAL EXPOSURE DURING PREGNANCY
     Route: 064
     Dates: start: 20080617, end: 20080717
  2. TOPAMAX [Suspect]
     Indication: FOETAL EXPOSURE DURING PREGNANCY
     Route: 064
     Dates: start: 200704, end: 200801
  3. TYLENOL/CODEINE [Suspect]
     Indication: FOETAL EXPOSURE DURING PREGNANCY
     Route: 064
  4. HYDROCODONE [Suspect]
     Indication: FOETAL EXPOSURE DURING PREGNANCY
     Route: 064
  5. ZANTAC [Suspect]
     Indication: PRODUCT USED FOR UNKNOWN INDICATION
     Route: 065
  6. NORVASC [Suspect]
     Indication: PRODUCT USED FOR UNKNOWN INDICATION
  7. PRILOSEC [Suspect]
     Indication: PRODUCT USED FOR UNKNOWN INDICATION
  8. ANTIVERT [Suspect]
     Indication: PRODUCT USED FOR UNKNOWN INDICATION
  9. RELPAX [Suspect]
     Indication: PRODUCT USED FOR UNKNOWN INDICATION
  10. METOPROLOL [Suspect]
     Indication: CHOKING
     Route: 062
  11. METOPROLOL [Suspect]
     Indication: EPISTAXIS
     Route: 062
  12. AMOXIL [Suspect]
     Indication: PRODUCT USED FOR UNKNOWN INDICATION
     Route: 064
  13. ALDOMET [Concomitant]
     Indication: HYPERTENSION
     Route: 065
  14. CLINDAMYCIN [Concomitant]
     Indication: FOETAL EXPOSURE DURING PREGNANCY
     Route: 064
  15. PRENATAL VITAMIN [Concomitant]
     Indication: PRODUCT USED FOR UNKNOWN INDICATION
     Route: 065

REACTIONS (26)
  - Premature baby [Not Recovered/Not Resolved]
  - Developmental delay [Unknown]
  - Pseudostrabismus [Unknown]
  - Cleft palate [Recovering/Resolving]
  - Ankyloglossia congenital [Recovered/Resolved]
  - Cleft uvula [Unknown]
  - Anaemia [Unknown]
  - Pneumonia aspiration [Recovered/Resolved]
  - Gastrooesophageal reflux disease [Unknown]
  - Constipation [Unknown]
  - Asthma [Unknown]
  - Amblyopia [Unknown]
  - Heterophoria [Unknown]
  - Astigmatism [Unknown]
  - Hypermetropia [Unknown]
  - Eye disorder [Unknown]
  - Hyperbilirubinaemia [Unknown]
  - Hypocalcaemia [Unknown]
  - Autism [Not Recovered/Not Resolved]
  - Cardiac murmur [Unknown]
  - Dental caries [Recovering/Resolving]
  - Gingivitis [Unknown]
  - Speech disorder [Recovering/Resolving]
  - Feeding disorder [Recovering/Resolving]
  - Emotional distress [Unknown]
  - Multiple allergies [Unknown]
